FAERS Safety Report 23192454 (Version 1)
Quarter: 2023Q4

REPORT INFORMATION
  Report Type: Report from Study
  Country: US (occurrence: US)
  Receive Date: 20231116
  Receipt Date: 20231116
  Transmission Date: 20240109
  Serious: Yes (Hospitalization, Other)
  Sender: FDA-Public Use
  Company Number: US-HORIZON THERAPEUTICS-HZN-2021-006446

PATIENT

DRUGS (12)
  1. TEPEZZA [Suspect]
     Active Substance: TEPROTUMUMAB-TRBW
     Indication: Endocrine ophthalmopathy
     Dosage: UNK
     Route: 065
     Dates: start: 20210426
  2. TEPEZZA [Suspect]
     Active Substance: TEPROTUMUMAB-TRBW
     Dosage: SIXTH INFUSION
     Route: 042
     Dates: start: 202108
  3. TIMOLOL [Concomitant]
     Active Substance: TIMOLOL
  4. FARXIGA [Concomitant]
     Active Substance: DAPAGLIFLOZIN PROPANEDIOL
  5. VITAMINS [Concomitant]
     Active Substance: VITAMINS
  6. VITAMIN D3 [Concomitant]
     Active Substance: CHOLECALCIFEROL
  7. ASPIRIN [Concomitant]
     Active Substance: ASPIRIN
  8. Artificial tears [Concomitant]
  9. LATANOPROST [Concomitant]
     Active Substance: LATANOPROST
  10. METHIMAZOLE [Concomitant]
     Active Substance: METHIMAZOLE
  11. BETAXOLOL [Concomitant]
     Active Substance: BETAXOLOL
  12. LOSARTAN [Concomitant]
     Active Substance: LOSARTAN

REACTIONS (14)
  - Endocrine ophthalmopathy [Unknown]
  - Condition aggravated [Unknown]
  - Clostridium difficile infection [Unknown]
  - Cerebrovascular accident [Unknown]
  - Anti-thyroid antibody increased [Unknown]
  - Dehydration [Unknown]
  - Hypertension [Unknown]
  - Cognitive disorder [Not Recovered/Not Resolved]
  - Blood glucose increased [Unknown]
  - Nausea [Unknown]
  - Alopecia [Unknown]
  - Fatigue [Unknown]
  - Dry skin [Unknown]
  - Headache [Unknown]

NARRATIVE: CASE EVENT DATE: 20210801
